FAERS Safety Report 12290240 (Version 1)
Quarter: 2016Q2

REPORT INFORMATION
  Report Type: Spontaneous
  Country: US (occurrence: US)
  Receive Date: 20160421
  Receipt Date: 20160421
  Transmission Date: 20160815
  Serious: No
  Sender: FDA-Public Use
  Company Number: US-BRISTOL-MYERS SQUIBB COMPANY-BMS-2016-028498

PATIENT
  Sex: Male

DRUGS (2)
  1. YERVOY [Suspect]
     Active Substance: IPILIMUMAB
     Indication: METASTATIC MALIGNANT MELANOMA
     Dosage: 1040 MG, Q3WK
     Route: 065
     Dates: start: 20160217
  2. YERVOY [Suspect]
     Active Substance: IPILIMUMAB
     Dosage: 1040 MG, Q3WK
     Route: 065
     Dates: start: 20160307

REACTIONS (1)
  - Adverse event [Unknown]
